FAERS Safety Report 12004292 (Version 1)
Quarter: 2016Q1

REPORT INFORMATION
  Report Type: Spontaneous
  Country: US (occurrence: US)
  Receive Date: 20160204
  Receipt Date: 20160204
  Transmission Date: 20160526
  Serious: Yes (Other)
  Sender: FDA-Public Use
  Company Number: US-SA-2016SA017273

PATIENT
  Age: 16 Month
  Sex: Female

DRUGS (1)
  1. BALMEX DIAPER RASH [Suspect]
     Active Substance: ZINC OXIDE
     Route: 065
     Dates: end: 20160121

REACTIONS (4)
  - Rash [Not Recovered/Not Resolved]
  - Expired product administered [Unknown]
  - Staphylococcal infection [Not Recovered/Not Resolved]
  - Acne [Not Recovered/Not Resolved]
